FAERS Safety Report 6486786-3 (Version None)
Quarter: 2009Q4

REPORT INFORMATION
  Report Type: 
  Country: None (occurrence: None)
  Receive Date: 20091209
  Receipt Date: 20091209
  Transmission Date: 20100525
  Serious: Yes (Hospitalization)
  Sender: FDA-Public Use
  Company Number: None

PATIENT
  Age: 70 Year
  Sex: Male
  Weight: 85.2762 kg

DRUGS (6)
  1. RITUXAN [Suspect]
     Indication: NON-HODGKIN'S LYMPHOMA
     Dosage: 375 MG/M2  Q2WEEKS INTRAVENOUS
     Route: 042
     Dates: start: 20090806, end: 20091112
  2. CYCLOPHOSPHAMIDE [Suspect]
     Indication: NON-HODGKIN'S LYMPHOMA
     Dosage: 750 MG/M2 Q2WEEKS INTRAVENOUS
     Route: 042
     Dates: start: 20090807, end: 20091112
  3. DOXORUBICIN HCL [Suspect]
     Indication: NON-HODGKIN'S LYMPHOMA
     Dosage: 50MG/M2 Q2WEEKS INTRAVENOUS
     Route: 042
     Dates: start: 20090807, end: 20091112
  4. VINCRISTINE [Suspect]
     Indication: NON-HODGKIN'S LYMPHOMA
     Dosage: 1MG MAX Q2WEEKS INTRAVENOUS
     Route: 042
     Dates: start: 20090807, end: 20091112
  5. PREDNISONE TAB [Suspect]
     Indication: NON-HODGKIN'S LYMPHOMA
     Dosage: 100MG DAYS 1-5 ORAL
     Route: 048
     Dates: start: 20090807, end: 20091116
  6. PEGYLATED FILGRASTIM [Suspect]
     Indication: NON-HODGKIN'S LYMPHOMA
     Dosage: 6MG DAY 2 SUBCUTANEOUS
     Route: 058
     Dates: start: 20090808, end: 20091113

REACTIONS (3)
  - DEHYDRATION [None]
  - LOBAR PNEUMONIA [None]
  - PNEUMONIA [None]
